FAERS Safety Report 6539577-9 (Version None)
Quarter: 2010Q1

REPORT INFORMATION
  Report Type: 
  Country: None (occurrence: None)
  Receive Date: 20100111
  Receipt Date: 20100105
  Transmission Date: 20100710
  Serious: Yes (Other)
  Sender: FDA-Public Use
  Company Number: 1000011176

PATIENT
  Sex: Male
  Weight: 88.905 kg

DRUGS (4)
  1. BYSTOLIC [Suspect]
     Indication: ESSENTIAL TREMOR
     Dosage: 5 MG (5 MG, 1 IN 1 D), ORAL
     Route: 048
     Dates: start: 20090421, end: 20090604
  2. BYSTOLIC [Suspect]
     Indication: HYPERTENSION
     Dosage: 5 MG (5 MG, 1 IN 1 D), ORAL
     Route: 048
     Dates: start: 20090421, end: 20090604
  3. BYSTOLIC [Suspect]
     Indication: ESSENTIAL TREMOR
     Dosage: 5 MG (5 MG, 1 IN 1 D), ORAL
     Route: 048
     Dates: start: 20090601, end: 20090601
  4. BYSTOLIC [Suspect]
     Indication: HYPERTENSION
     Dosage: 5 MG (5 MG, 1 IN 1 D), ORAL
     Route: 048
     Dates: start: 20090601, end: 20090601

REACTIONS (2)
  - DEPRESSION [None]
  - SUICIDAL IDEATION [None]
